FAERS Safety Report 6193433-7 (Version None)
Quarter: 2009Q2

REPORT INFORMATION
  Report Type: 
  Country: None (occurrence: None)
  Receive Date: 20090518
  Receipt Date: 20081217
  Transmission Date: 20091009
  Serious: No
  Sender: FDA-Public Use
  Company Number: US-ABBOTT-08P-163-0493523-00

PATIENT
  Sex: Male
  Weight: 74.91 kg

DRUGS (1)
  1. AZMACORT [Suspect]
     Indication: ASTHMA
     Dates: start: 19980101

REACTIONS (3)
  - COUGH [None]
  - DRUG EFFECT DECREASED [None]
  - HYPERTENSION [None]
